FAERS Safety Report 20714527 (Version 2)
Quarter: 2022Q3

REPORT INFORMATION
  Report Type: Spontaneous
  Country: CA (occurrence: CA)
  Receive Date: 20220415
  Receipt Date: 20220715
  Transmission Date: 20221026
  Serious: Yes (Death, Hospitalization, Disabling, Other)
  Sender: FDA-Public Use
  Company Number: CA-BAXTER-2022BAX007910

PATIENT
  Age: 61 Year
  Sex: Female
  Weight: 67 kg

DRUGS (36)
  1. CYCLOPHOSPHAMIDE [Suspect]
     Active Substance: CYCLOPHOSPHAMIDE
     Indication: Breast cancer
     Dosage: DOSAGE FORM: NOT SPECIFIED, ONCE EVERY 2 WEEKS
     Route: 042
  2. AMIODARONE HYDROCHLORIDE [Suspect]
     Active Substance: AMIODARONE HYDROCHLORIDE
     Indication: Product used for unknown indication
     Dosage: UNK
     Route: 065
  3. AZITHROMYCIN [Suspect]
     Active Substance: AZITHROMYCIN
     Indication: Product used for unknown indication
     Dosage: DOSAGE FORM: NOT SPECIFIED
     Route: 042
  4. CEFTRIAXONE SODIUM [Suspect]
     Active Substance: CEFTRIAXONE SODIUM
     Indication: Product used for unknown indication
     Dosage: 1 GRAM,QD
     Route: 042
  5. DIGOXIN [Suspect]
     Active Substance: DIGOXIN
     Indication: Product used for unknown indication
     Dosage: 10 MG, 6X A DAY, INTRAVENOUS (NOT OTHERWISE SPECIFIED)
     Route: 042
  6. DIGOXIN [Suspect]
     Active Substance: DIGOXIN
     Dosage: 0.25 MG, 6X A DAY
     Route: 042
  7. DILTIAZEM HYDROCHLORIDE [Suspect]
     Active Substance: DILTIAZEM HYDROCHLORIDE
     Indication: Product used for unknown indication
     Dosage: 180 MG
     Route: 048
  8. DIMENHYDRINATE [Suspect]
     Active Substance: DIMENHYDRINATE
     Indication: Product used for unknown indication
     Dosage: DOSAGE FORM NOT SPECIFIED, INTRAVENOUS NOT OTHERWISE SPECIFIED
     Route: 042
  9. DIMENHYDRINATE [Suspect]
     Active Substance: DIMENHYDRINATE
     Dosage: 50 MG,DOSAGE FORM NOT SPECIFIED, INTRAVENOUS NOT OTHERWISE SPECIFIED
     Route: 042
  10. DOXORUBICIN [Suspect]
     Active Substance: DOXORUBICIN
     Indication: Breast cancer
     Dosage: 106 MILLIGRAM,PRN
     Route: 042
  11. DOXORUBICIN HYDROCHLORIDE [Suspect]
     Active Substance: DOXORUBICIN HYDROCHLORIDE
     Indication: Breast cancer
     Dosage: 106 MILLIGRAM, 1 EVERY 14 DAYS,INTRAVENOUS (NOT OTHERWISE SPECIFIED)
     Route: 042
  12. FUROSEMIDE [Suspect]
     Active Substance: FUROSEMIDE
     Indication: Product used for unknown indication
     Dosage: DOSAGE FORM: NOT SPECIFIED
     Route: 048
  13. HYDRALAZINE [Suspect]
     Active Substance: HYDRALAZINE HYDROCHLORIDE
     Indication: Product used for unknown indication
     Dosage: 10 MILLIGRAM,6X A DAY, INTRAVENOUS (NOT OTHERWISE SPECIFIED)
     Route: 042
  14. HYDROMORPHONE [Suspect]
     Active Substance: HYDROMORPHONE
     Indication: Product used for unknown indication
     Dosage: DOSAGE FORM: NOT SPECIFIED
     Route: 042
  15. HYDROMORPHONE HYDROCHLORIDE [Suspect]
     Active Substance: HYDROMORPHONE HYDROCHLORIDE
     Indication: Product used for unknown indication
     Dosage: UNK
     Route: 042
  16. LOVENOX [Suspect]
     Active Substance: ENOXAPARIN SODIUM
     Indication: Product used for unknown indication
     Dosage: 40 MILLIGRAM,QD
     Route: 058
  17. METHYLPREDNISOLONE [Suspect]
     Active Substance: METHYLPREDNISOLONE
     Indication: Product used for unknown indication
     Dosage: 125 MILLIGRAM,4X A DAY
     Route: 042
  18. METHYLPREDNISOLONE [Suspect]
     Active Substance: METHYLPREDNISOLONE
     Dosage: 125 MILLIGRAM,4X A DAY
     Route: 042
  19. METOPROLOL [Suspect]
     Active Substance: METOPROLOL
     Indication: Product used for unknown indication
     Dosage: 4 MILLIGRAM,4X A DAY
     Route: 042
  20. METOPROLOL [Suspect]
     Active Substance: METOPROLOL
     Dosage: 2.5 MILLIGRAM,4X A DAY
     Route: 042
  21. METOPROLOL [Suspect]
     Active Substance: METOPROLOL
     Dosage: 5 MG, 4X A DAY
     Route: 042
  22. METOPROLOL TARTRATE [Suspect]
     Active Substance: METOPROLOL TARTRATE
     Indication: Product used for unknown indication
     Dosage: 5 MG, 4X A DAY,DOSAGE FORM:NOT SPECIFIED,INTRAVENOUS (NOT OTHERWISE SPECIFIED)
     Route: 042
  23. METOPROLOL TARTRATE [Suspect]
     Active Substance: METOPROLOL TARTRATE
     Dosage: 2.5 MG,DOSAGE FORM:NOT SPECIFIED, INTRAVENOUS(NOT OTHERWISE SPECIFIED)
     Route: 042
  24. MORPHINE [Suspect]
     Active Substance: MORPHINE
     Indication: Product used for unknown indication
     Dosage: UNK
     Route: 042
  25. MORPHINE SULFATE [Suspect]
     Active Substance: MORPHINE SULFATE
     Indication: Product used for unknown indication
     Dosage: DOSAGE FORM: NOT SPECIFIED
     Route: 042
  26. MORPHINE SULFATE [Suspect]
     Active Substance: MORPHINE SULFATE
     Dosage: ONCE EVERY 10 MINUTES
     Route: 065
  27. PACLITAXEL [Suspect]
     Active Substance: PACLITAXEL
     Indication: Breast cancer
     Dosage: 297 MILLIGRAM, ONCE EVERY 14 DAYS
     Route: 042
  28. PANTOPRAZOLE SODIUM ANHYDROUS [Suspect]
     Active Substance: PANTOPRAZOLE SODIUM ANHYDROUS
     Indication: Product used for unknown indication
     Dosage: 8 MILLIGRAM,1X AN HOUR
     Route: 042
  29. TRASTUZUMAB [Suspect]
     Active Substance: TRASTUZUMAB
     Indication: Breast cancer
     Dosage: UNK
     Route: 065
  30. APREPITANT [Concomitant]
     Active Substance: APREPITANT
     Indication: Supportive care
     Dosage: 125 MG
     Route: 048
  31. DEXAMETHASONE [Concomitant]
     Active Substance: DEXAMETHASONE
     Indication: Product used for unknown indication
     Dosage: 20 MG, QD
     Route: 048
  32. FILGRASTIM [Concomitant]
     Active Substance: FILGRASTIM
     Indication: Product used for unknown indication
     Route: 065
  33. GABAPENTIN [Concomitant]
     Active Substance: GABAPENTIN
     Indication: Product used for unknown indication
     Route: 065
  34. METOCLOPRAMIDE [Concomitant]
     Active Substance: METOCLOPRAMIDE
     Indication: Product used for unknown indication
     Route: 065
  35. ONDANSETRON [Concomitant]
     Active Substance: ONDANSETRON
     Indication: Product used for unknown indication
     Route: 065
  36. ENOXAPARIN SODIUM [Suspect]
     Active Substance: ENOXAPARIN SODIUM
     Indication: Product used for unknown indication
     Dosage: 40 MG, QD
     Route: 058

REACTIONS (3)
  - Alveolitis [Fatal]
  - Atrial fibrillation [Fatal]
  - Hypoxia [Fatal]
